FAERS Safety Report 9929730 (Version 2)
Quarter: 2014Q2

REPORT INFORMATION
  Report Type: Spontaneous
  Country: US (occurrence: US)
  Receive Date: 20140227
  Receipt Date: 20140410
  Transmission Date: 20141212
  Serious: Yes (Hospitalization, Other)
  Sender: FDA-Public Use
  Company Number: US-PFIZER INC-2014055978

PATIENT
  Sex: Female

DRUGS (1)
  1. ATORVASTATIN CALCIUM [Suspect]
     Dosage: UNK

REACTIONS (4)
  - Meniscus injury [Unknown]
  - Malaise [Unknown]
  - Arthropathy [Unknown]
  - Drug hypersensitivity [Unknown]
